FAERS Safety Report 11693143 (Version 1)
Quarter: 2015Q4

REPORT INFORMATION
  Report Type: Spontaneous
  Country: US (occurrence: None)
  Receive Date: 20151102
  Receipt Date: 20151102
  Transmission Date: 20160304
  Serious: Yes (Other)
  Sender: FDA-Public Use
  Company Number: None

PATIENT
  Age: 64 Year
  Sex: Male
  Weight: 102.06 kg

DRUGS (5)
  1. LISINOPRIL. [Concomitant]
     Active Substance: LISINOPRIL
  2. ADVIL [Concomitant]
     Active Substance: IBUPROFEN
  3. MULTI-VITAMIN [Concomitant]
     Active Substance: .ALPHA.-TOCOPHEROL ACETATE, DL-\ASCORBIC ACID\CYANOCOBALAMIN\FLUORIDE ION\FOLIC ACID\NIACIN\PYRIDOXINE\RIBOFLAVIN\THIAMINE\VITAMIN A\VITAMIN D
  4. ELIDEL [Suspect]
     Active Substance: PIMECROLIMUS
     Indication: RASH
     Dosage: TWICE DAILY  APPLIED TO A SURFACE, USUALLY THE SKIN
     Route: 061
     Dates: start: 20151028, end: 20151028
  5. FLAXSEED [Concomitant]
     Active Substance: FLAX SEED

REACTIONS (3)
  - Erythema [None]
  - Vision blurred [None]
  - Eye swelling [None]

NARRATIVE: CASE EVENT DATE: 20151028
